FAERS Safety Report 8533319-3 (Version None)
Quarter: 2012Q3

REPORT INFORMATION
  Report Type: 
  Country: None (occurrence: None)
  Receive Date: 20120724
  Receipt Date: 20120713
  Transmission Date: 20120928
  Serious: Yes (Other)
  Sender: FDA-Public Use
  Company Number: JP-VERTEX PHARMACEUTICALS INC.-AE-2012-005595

PATIENT
  Age: 65 Year
  Sex: Male

DRUGS (10)
  1. RIBAVIRIN [Concomitant]
     Route: 048
     Dates: start: 20120229, end: 20120411
  2. PEG-INTRON [Concomitant]
     Route: 058
     Dates: start: 20120229
  3. ALLOPURINOL [Concomitant]
     Route: 048
     Dates: start: 20120303
  4. CLARITIN [Concomitant]
     Route: 048
     Dates: start: 20120305
  5. TELAVIC (TELAPREVIR) [Suspect]
     Route: 048
     Dates: start: 20120329
  6. ALLEGRA [Concomitant]
     Route: 048
     Dates: start: 20120305
  7. MAGMITT [Concomitant]
     Route: 048
     Dates: start: 20120404
  8. TELAVIC (TELAPREVIR) [Suspect]
     Indication: HEPATITIS C
     Route: 048
     Dates: start: 20120229, end: 20120328
  9. VICCLOX [Concomitant]
     Dates: start: 20120305, end: 20120311
  10. RIBAVIRIN [Concomitant]
     Route: 048
     Dates: start: 20120412

REACTIONS (4)
  - MALAISE [None]
  - DECREASED APPETITE [None]
  - HYPERURICAEMIA [None]
  - ECZEMA [None]
